FAERS Safety Report 4319877-3 (Version None)
Quarter: 2004Q1

REPORT INFORMATION
  Report Type: 
  Country: None (occurrence: None)
  Receive Date: 20040319
  Receipt Date: 20040310
  Transmission Date: 20041129
  Serious: Yes (Other)
  Sender: FDA-Public Use
  Company Number: PHBS2004CA03567

PATIENT
  Sex: Female

DRUGS (1)
  1. COMBIPATCH [Suspect]
     Indication: HORMONE REPLACEMENT THERAPY
     Dosage: 50/250 UG
     Route: 062
     Dates: start: 20020101

REACTIONS (7)
  - APPLICATION SITE PAIN [None]
  - CHILLS [None]
  - DISTURBANCE IN ATTENTION [None]
  - INSOMNIA [None]
  - MENOPAUSAL SYMPTOMS [None]
  - MYALGIA [None]
  - ULTRASOUND LIVER ABNORMAL [None]
